FAERS Safety Report 9580809 (Version 3)
Quarter: 2014Q1

REPORT INFORMATION
  Report Type: Spontaneous
  Country: GB (occurrence: GB)
  Receive Date: 20131002
  Receipt Date: 20140205
  Transmission Date: 20141002
  Serious: Yes (Hospitalization, Other)
  Sender: FDA-Public Use
  Company Number: GB-PFIZER INC-2013281620

PATIENT
  Age: 55 Year
  Sex: Female
  Weight: 75 kg

DRUGS (21)
  1. CLARITHROMYCIN [Suspect]
     Dosage: UNK
     Route: 065
     Dates: end: 20121121
  2. ONDANSETRON [Interacting]
     Dosage: UNK
     Route: 065
     Dates: start: 20121211
  3. ONDANSETRON [Interacting]
     Dosage: 4 MG, 3X/DAY
     Route: 065
     Dates: start: 20121211
  4. RIBAVIRIN [Suspect]
     Indication: CHRONIC HEPATITIS C
     Dosage: 1000 MG, DAILY (400 MG IN THE MORNING AND 600 MG IN THE EVENING)
     Route: 048
     Dates: start: 20121023, end: 20121120
  5. RIBAVIRIN [Suspect]
     Dosage: 400 MG, 2X/DAY
     Route: 048
     Dates: start: 20121204, end: 20121214
  6. RIBAVIRIN [Suspect]
     Dosage: 600 MG, 1X/DAY
     Route: 048
     Dates: start: 20121214, end: 20130115
  7. RIBAVIRIN [Suspect]
     Dosage: 400 MG, 2X/DAY
     Route: 048
     Dates: start: 20130115, end: 20130131
  8. RIBAVIRIN [Suspect]
     Dosage: 600 MG, 1X/DAY
     Route: 048
     Dates: start: 20130131, end: 20130212
  9. RIBAVIRIN [Suspect]
     Dosage: 400 MG, 2X/DAY
     Route: 048
     Dates: start: 20130212, end: 20130227
  10. RIBAVIRIN [Suspect]
     Dosage: 1000 MG, 1X/DAY
     Route: 048
     Dates: start: 20130227, end: 20130503
  11. TRIMETHOPRIM [Interacting]
     Dosage: UNK
     Route: 065
  12. DOMPERIDONE [Interacting]
     Dosage: 10 MG, 3X/DAY
     Route: 065
     Dates: start: 20121026
  13. INCIVO [Suspect]
     Indication: CHRONIC HEPATITIS C
     Dosage: 750 MG, 3X/DAY
     Route: 048
     Dates: start: 20121023, end: 20121207
  14. PEGINTERFERON ALFA-2B [Suspect]
     Indication: CHRONIC HEPATITIS C
     Dosage: 100 UG, DAILY
     Route: 058
     Dates: start: 20121023, end: 20121207
  15. BEECHAM^S POWDERS [Interacting]
     Dosage: UNK
     Route: 065
  16. CYCLIZINE [Interacting]
     Dosage: 50 MG, DAILY
     Route: 065
  17. METACLOPRAMIDE [Interacting]
     Dosage: 10 MG, AS NEEDED
     Route: 065
  18. METACLOPRAMIDE [Interacting]
     Dosage: 10 MG, AS NEEDED
     Route: 065
     Dates: start: 20121211
  19. PARACETAMOL [Concomitant]
     Dosage: 1 G, 3X/DAY
     Route: 065
  20. EPADERM [Concomitant]
     Dosage: THREE TIMES DAY
     Route: 065
     Dates: start: 20121211
  21. XYLOPROCT [Concomitant]
     Dosage: THREE TIMES DAY
     Route: 065
     Dates: start: 20121211

REACTIONS (31)
  - Generalised erythema [Unknown]
  - Hypovolaemia [Unknown]
  - Drug interaction [Unknown]
  - Dizziness [Not Recovered/Not Resolved]
  - Hot flush [Not Recovered/Not Resolved]
  - Chills [Not Recovered/Not Resolved]
  - Malaise [Not Recovered/Not Resolved]
  - Nausea [Recovering/Resolving]
  - Rash [Recovering/Resolving]
  - Renal failure acute [Recovered/Resolved]
  - Anaemia [Unknown]
  - Cystitis [Unknown]
  - Dehydration [Unknown]
  - Dry skin [Unknown]
  - Eczema [Recovering/Resolving]
  - Fatigue [Unknown]
  - Haemorrhoids [Unknown]
  - Headache [Unknown]
  - Malaise [Unknown]
  - Nausea [Recovering/Resolving]
  - Oral candidiasis [Unknown]
  - Painful defaecation [Unknown]
  - Pain in extremity [Unknown]
  - Proctalgia [Unknown]
  - Rash [Recovering/Resolving]
  - Rash [Unknown]
  - Pharyngitis [Recovered/Resolved]
  - Urinary tract infection [Recovered/Resolved]
  - Vertigo [Not Recovered/Not Resolved]
  - Vomiting [Recovering/Resolving]
  - Rash generalised [Unknown]
